FAERS Safety Report 14112292 (Version 1)
Quarter: 2017Q4

REPORT INFORMATION
  Report Type: Spontaneous
  Country: US (occurrence: US)
  Receive Date: 20171020
  Receipt Date: 20171020
  Transmission Date: 20180321
  Serious: No
  Sender: FDA-Public Use
  Company Number: US-PRESTIGE BRANDS -2030996

PATIENT
  Sex: Female

DRUGS (1)
  1. MONISTAT 7 COMBINATION PACK TRIPLE ACTION [Suspect]
     Active Substance: MICONAZOLE NITRATE
     Indication: VULVOVAGINAL MYCOTIC INFECTION
     Route: 067
     Dates: start: 20170207, end: 20170207

REACTIONS (10)
  - Vaginal disorder [Recovered/Resolved]
  - Nausea [Recovered/Resolved]
  - Hypersensitivity [Recovered/Resolved]
  - Vulvovaginal pruritus [Recovered/Resolved]
  - Vulvovaginal pain [Not Recovered/Not Resolved]
  - Vulvovaginal swelling [Recovered/Resolved]
  - Vulvovaginal burning sensation [Recovered/Resolved]
  - Vaginal haemorrhage [Recovered/Resolved]
  - Abdominal pain [None]
  - Crying [None]

NARRATIVE: CASE EVENT DATE: 20170207
